FAERS Safety Report 7900617-3 (Version None)
Quarter: 2011Q4

REPORT INFORMATION
  Report Type: 
  Country: None (occurrence: None)
  Receive Date: 20111108
  Receipt Date: 20111029
  Transmission Date: 20120403
  Serious: Yes (Disabling, Other)
  Sender: FDA-Public Use
  Company Number: TR-JNJFOC-20111012922

PATIENT

DRUGS (5)
  1. VALPROATE SODIUM [Suspect]
     Indication: MYOCLONIC EPILEPSY
     Route: 065
  2. TOPIRAMATE [Suspect]
     Indication: MYOCLONIC EPILEPSY
     Route: 048
  3. CLONAZEPAM [Suspect]
     Indication: MYOCLONIC EPILEPSY
     Route: 065
  4. LAMOTRIGINE [Suspect]
     Indication: MYOCLONIC EPILEPSY
     Route: 065
  5. PIRACETAM [Suspect]
     Indication: MYOCLONIC EPILEPSY
     Route: 065

REACTIONS (2)
  - MYOCLONUS [None]
  - NERVOUS SYSTEM DISORDER [None]
